FAERS Safety Report 15551626 (Version 2)
Quarter: 2019Q2

REPORT INFORMATION
  Report Type: Spontaneous
  Country: FR (occurrence: FR)
  Receive Date: 20181025
  Receipt Date: 20190402
  Transmission Date: 20190711
  Serious: Yes (Other)
  Sender: FDA-Public Use
  Company Number: FR-PFIZER INC-2018425505

PATIENT
  Age: 51 Year
  Sex: Female

DRUGS (2)
  1. PROCAINE [PROCAINE HYDROCHLORIDE] [Suspect]
     Active Substance: PROCAINE
     Dosage: UNKNOWN
     Route: 023
     Dates: start: 20180115, end: 20180115
  2. PIROXICAM. [Suspect]
     Active Substance: PIROXICAM
     Indication: MESOTHERAPY
     Dosage: UNK
     Route: 023
     Dates: start: 20180115, end: 20180115

REACTIONS (4)
  - Injection site injury [Recovered/Resolved with Sequelae]
  - Product use issue [Unknown]
  - Product use in unapproved indication [Unknown]
  - Injection site atrophy [Recovered/Resolved with Sequelae]

NARRATIVE: CASE EVENT DATE: 201804
